FAERS Safety Report 6693185-8 (Version None)
Quarter: 2010Q2

REPORT INFORMATION
  Report Type: 
  Country: None (occurrence: None)
  Receive Date: 20100422
  Receipt Date: 20100416
  Transmission Date: 20101027
  Serious: Yes (Life-Threatening, Hospitalization)
  Sender: FDA-Public Use
  Company Number: GB-ELI_LILLY_AND_COMPANY-GB201002003449

PATIENT
  Sex: Female

DRUGS (12)
  1. BYETTA [Suspect]
     Dosage: 10 UG, UNKNOWN
     Route: 058
     Dates: end: 20100131
  2. METFORMIN [Concomitant]
     Dosage: UNK, UNKNOWN
     Route: 065
  3. WARFARIN SODIUM [Concomitant]
     Dosage: UNK, UNKNOWN
  4. FUROSEMIDE [Concomitant]
     Dosage: UNK, UNKNOWN
  5. PIOGLITAZONE [Concomitant]
     Dosage: UNK, UNKNOWN
  6. DIGOXIN [Concomitant]
     Dosage: UNK, UNKNOWN
  7. GLIMEPIRIDE [Concomitant]
     Dosage: UNK, UNKNOWN
  8. AMLODIPINE [Concomitant]
     Dosage: UNK, UNKNOWN
  9. TRAMADOL HCL [Concomitant]
     Dosage: UNK, UNKNOWN
  10. LEVOTHYROXINE [Concomitant]
     Dosage: UNK, UNKNOWN
  11. LOSARTAN POTASSIUM [Concomitant]
     Dosage: UNK, UNKNOWN
  12. OMEPRAZOLE [Concomitant]
     Dosage: UNK, UNKNOWN

REACTIONS (3)
  - DIABETIC KETOACIDOSIS [None]
  - RENAL FAILURE ACUTE [None]
  - SEPSIS [None]
